FAERS Safety Report 9741354 (Version 1)
Quarter: 2013Q4

REPORT INFORMATION
  Report Type: Report from Study
  Country: MX (occurrence: MX)
  Receive Date: 20131209
  Receipt Date: 20131209
  Transmission Date: 20140711
  Serious: Yes (Other)
  Sender: FDA-Public Use
  Company Number: PHHY2013MX142318

PATIENT
  Age: 80 Year
  Sex: Female
  Weight: 59 kg

DRUGS (12)
  1. EXELON PATCH [Suspect]
     Indication: DEMENTIA ALZHEIMER^S TYPE
     Dosage: 4.6 MG, DAILY
     Route: 062
     Dates: start: 201311
  2. EXELON PATCH [Suspect]
     Indication: OFF LABEL USE
     Dosage: 4.6 MG, EVERY 48 HOURS
     Route: 062
  3. EXELON PATCH [Suspect]
     Indication: CARDIOVASCULAR DISORDER
     Dosage: 1 PATCH EVERY THIRD DAY
     Route: 062
  4. DIGOXINA [Concomitant]
     Indication: ARRHYTHMIA
     Dosage: 0.5 DF, FROM MONDAY TO FRIDAY IN THE MORNING
     Route: 048
  5. DIGOXINA [Concomitant]
     Indication: EMOTIONAL DISORDER
  6. KEPRA [Concomitant]
     Indication: CEREBROVASCULAR ACCIDENT
     Dosage: 0.5 DF, DAILY AT NIGHT
  7. LEVOTIROXINA [Concomitant]
     Indication: HYPERTHYROIDISM
     Dosage: 0.5 DF, DAILY IN THE MORNING BEFORE BREAKFAST
     Route: 048
  8. ATORVASTATIN [Concomitant]
     Indication: CEREBRAL INFARCTION
     Dosage: 1 DF, DAILY IN THE EVENING
     Route: 048
  9. MICARDIS PLUS [Concomitant]
     Indication: HYPERTENSION
     Dosage: 1 DF, UNK
  10. ACETYLSALICYLIC ACID [Concomitant]
     Indication: THROMBOSIS PROPHYLAXIS
     Dosage: 0.5 DF, DAILY IN THE MORNING
     Route: 048
  11. OMEPRAZOLE [Concomitant]
     Indication: EPIGASTRIC DISCOMFORT
     Dosage: 1 DF, QD
     Route: 048
  12. INSULIN GLARGINE [Concomitant]
     Indication: DIABETES MELLITUS
     Dosage: 35 ML SOLUTION DAILY NIGHT
     Route: 003

REACTIONS (3)
  - Hearing impaired [Not Recovered/Not Resolved]
  - Feeling abnormal [Not Recovered/Not Resolved]
  - Inappropriate schedule of drug administration [Unknown]
